FAERS Safety Report 23421321 (Version 2)
Quarter: 2024Q1

REPORT INFORMATION
  Report Type: Report from Study
  Country: CA (occurrence: CA)
  Receive Date: 20240119
  Receipt Date: 20240326
  Transmission Date: 20240409
  Serious: Yes (Other)
  Sender: FDA-Public Use
  Company Number: CA-TAKEDA-2023TUS001847

PATIENT
  Age: 29 Year
  Sex: Male

DRUGS (4)
  1. VEDOLIZUMAB [Suspect]
     Active Substance: VEDOLIZUMAB
     Indication: Crohn^s disease
     Dosage: 300 MILLIGRAM
     Route: 042
     Dates: start: 20220815
  2. VEDOLIZUMAB [Suspect]
     Active Substance: VEDOLIZUMAB
     Indication: Crohn^s disease
     Dosage: 108 MILLIGRAM, Q2WEEKS
     Route: 058
     Dates: start: 20221206, end: 20221206
  3. PREDNISONE [Concomitant]
     Active Substance: PREDNISONE
     Dosage: UNK
  4. BUTYLSCOPOLAMINE BROMIDE [Concomitant]
     Active Substance: BUTYLSCOPOLAMINE BROMIDE
     Dosage: UNK

REACTIONS (3)
  - Crohn^s disease [Unknown]
  - Gastrointestinal sounds abnormal [Unknown]
  - Drug ineffective [Unknown]

NARRATIVE: CASE EVENT DATE: 20230103
